FAERS Safety Report 19734703 (Version 1)
Quarter: 2021Q3

REPORT INFORMATION
  Report Type: Other
  Country: US (occurrence: US)
  Receive Date: 20210823
  Receipt Date: 20210823
  Transmission Date: 20211014
  Serious: Yes (Death, Hospitalization, Other)
  Sender: FDA-Public Use
  Company Number: US-ROCHE-2884765

PATIENT
  Sex: Female

DRUGS (18)
  1. OCREVUS [Suspect]
     Active Substance: OCRELIZUMAB
     Indication: PRIMARY PROGRESSIVE MULTIPLE SCLEROSIS
     Route: 042
  2. BIOTIN [Concomitant]
     Active Substance: BIOTIN
  3. FLONASE [Concomitant]
     Active Substance: FLUTICASONE PROPIONATE
     Dosage: 1 TO 2 BY MOUTH
     Route: 045
  4. LASIX [Concomitant]
     Active Substance: FUROSEMIDE
     Route: 048
  5. NEURONTIN [Concomitant]
     Active Substance: GABAPENTIN
     Route: 048
  6. BONIVA [Concomitant]
     Active Substance: IBANDRONATE SODIUM
     Route: 048
  7. VITAMIN D3 [Concomitant]
     Active Substance: CHOLECALCIFEROL
     Dosage: 300 UNITS DAILY
     Route: 048
  8. NITROSTAT [Concomitant]
     Active Substance: NITROGLYCERIN
     Route: 060
  9. DITROPAN [Concomitant]
     Active Substance: OXYBUTYNIN CHLORIDE
     Dosage: BY NASAL ROUTE
     Route: 048
  10. COREG [Concomitant]
     Active Substance: CARVEDILOL
     Route: 048
  11. LOPERAMIDE [Concomitant]
     Active Substance: LOPERAMIDE
     Dosage: AS NEEDED
     Route: 048
  12. COZAAR [Concomitant]
     Active Substance: LOSARTAN POTASSIUM
     Dosage: WITH LUNCH
     Route: 048
  13. MELATONIN [Concomitant]
     Active Substance: MELATONIN
     Dosage: DAILY
     Route: 048
  14. TYLENOL [Concomitant]
     Active Substance: ACETAMINOPHEN
     Indication: PAIN
     Route: 048
  15. PULMICORT TURBUHALER [Concomitant]
     Active Substance: BUDESONIDE
  16. LORATADINE. [Concomitant]
     Active Substance: LORATADINE
     Route: 048
  17. LIPITOR [Concomitant]
     Active Substance: ATORVASTATIN CALCIUM
     Dosage: DAILY
     Route: 048
  18. PLAVIX [Concomitant]
     Active Substance: CLOPIDOGREL BISULFATE
     Route: 048

REACTIONS (10)
  - Chronic obstructive pulmonary disease [Unknown]
  - End stage renal disease [Fatal]
  - Cardiac failure acute [Unknown]
  - Atrial fibrillation [Unknown]
  - Mitral valve incompetence [Unknown]
  - Acute kidney injury [Unknown]
  - Dyspnoea [Unknown]
  - Pain [Unknown]
  - Pneumonia [Unknown]
  - Acute respiratory failure [Unknown]
